FAERS Safety Report 8936886 (Version 1)
Quarter: 2012Q4

REPORT INFORMATION
  Report Type: Report from Study
  Country: ES (occurrence: ES)
  Receive Date: 20121130
  Receipt Date: 20121130
  Transmission Date: 20130627
  Serious: Yes (Other)
  Sender: FDA-Public Use
  Company Number: ES-ROCHE-1157288

PATIENT
  Age: 67 Year
  Sex: Female

DRUGS (7)
  1. VALGANCICLOVIR [Suspect]
     Indication: CYTOMEGALOVIRUS INFECTION
     Route: 065
  2. MYCOPHENOLATE MOFETIL [Suspect]
     Indication: CYTOMEGALOVIRUS INFECTION
     Route: 065
  3. GANCICLOVIR [Suspect]
     Indication: CYTOMEGALOVIRUS INFECTION
     Route: 042
  4. PREDNISONE [Suspect]
     Indication: CYTOMEGALOVIRUS INFECTION
     Route: 065
  5. FOSCARNET [Suspect]
     Indication: CYTOMEGALOVIRUS INFECTION
     Route: 042
  6. THYMOGLOBULIN [Suspect]
     Indication: CYTOMEGALOVIRUS INFECTION
     Route: 065
  7. TACROLIMUS [Suspect]
     Indication: CYTOMEGALOVIRUS INFECTION
     Route: 065

REACTIONS (7)
  - Cytomegalovirus infection [Unknown]
  - Diarrhoea [Unknown]
  - Leukopenia [Unknown]
  - Pneumonia [Unknown]
  - Lung infection [Unknown]
  - Oral fungal infection [Unknown]
  - Vulvovaginal mycotic infection [Unknown]
